FAERS Safety Report 17121782 (Version 1)
Quarter: 2019Q4

REPORT INFORMATION
  Report Type: Spontaneous
  Country: US (occurrence: US)
  Receive Date: 20191113
  Receipt Date: 20191113
  Transmission Date: 20200122
  Serious: Yes (Disabling)
  Sender: FDA-Public Use
  Company Number: None

PATIENT
  Age: 63 Year
  Sex: Female
  Weight: 83.46 kg

DRUGS (3)
  1. ANASTROZOLE 1 MG [Suspect]
     Active Substance: ANASTROZOLE
     Indication: INVASIVE DUCTAL BREAST CARCINOMA
     Route: 048
     Dates: start: 20190428, end: 20190711
  2. ANASTROZOLE. [Suspect]
     Active Substance: ANASTROZOLE
     Indication: INVASIVE DUCTAL BREAST CARCINOMA
     Route: 048
     Dates: start: 20190908, end: 20191017
  3. ANASTROZOLE 1MG [Suspect]
     Active Substance: ANASTROZOLE
     Indication: INVASIVE DUCTAL BREAST CARCINOMA
     Route: 048
     Dates: start: 20190803, end: 20190831

REACTIONS (23)
  - Vision blurred [None]
  - Disturbance in attention [None]
  - Miliaria [None]
  - Impaired self-care [None]
  - Apathy [None]
  - Neuropathy peripheral [None]
  - Lacrimation increased [None]
  - Eyelid infection [None]
  - Impaired driving ability [None]
  - Feeling abnormal [None]
  - Irritability [None]
  - Dry eye [None]
  - Emotional disorder [None]
  - Insomnia [None]
  - Dysgraphia [None]
  - Mental disorder [None]
  - Muscle twitching [None]
  - Mood swings [None]
  - Product substitution issue [None]
  - Vulvovaginal dryness [None]
  - Arthralgia [None]
  - Visual impairment [None]
  - Hot flush [None]
